FAERS Safety Report 7991219-1 (Version None)
Quarter: 2011Q4

REPORT INFORMATION
  Report Type: 
  Country: None (occurrence: None)
  Receive Date: 20111215
  Receipt Date: 20111205
  Transmission Date: 20120403
  Serious: Yes (Life-Threatening, Hospitalization)
  Sender: FDA-Public Use
  Company Number: TCI2011A04267

PATIENT
  Age: 59 Year
  Sex: Male

DRUGS (5)
  1. WARFARIN (WARFARIN POTASSIUM) [Concomitant]
  2. SUCRALFATE [Concomitant]
  3. ACTOS [Suspect]
     Indication: BLOOD GLUCOSE ABNORMAL
     Dosage: 15 MG (15 MG, 1 IN 1 D)
     Route: 048
     Dates: start: 20070219, end: 20110720
  4. BASEN OD TABLETS 0.2 (VOGLIBOSE) [Concomitant]
  5. RABEPRAZOLE SODIUM [Concomitant]

REACTIONS (5)
  - EMPHYSEMA [None]
  - BLADDER CANCER [None]
  - PULMONARY FIBROSIS [None]
  - PLEURAL FIBROSIS [None]
  - RENAL CYST [None]
